FAERS Safety Report 9134783 (Version 1)
Quarter: 2013Q1

REPORT INFORMATION
  Report Type: Spontaneous
  Country: US (occurrence: US)
  Receive Date: 20130304
  Receipt Date: 20130304
  Transmission Date: 20140127
  Serious: Yes (Other)
  Sender: FDA-Public Use
  Company Number: US-AMGEN-USASP2013012390

PATIENT
  Age: 86 Year
  Sex: Female

DRUGS (1)
  1. PROLIA [Suspect]
     Indication: OSTEOPOROSIS POSTMENOPAUSAL

REACTIONS (7)
  - Cervical vertebral fracture [Unknown]
  - Fall [Unknown]
  - Dementia [Unknown]
  - Mobility decreased [Unknown]
  - Speech disorder [Unknown]
  - Somnolence [Unknown]
  - Back pain [Unknown]
